FAERS Safety Report 24983210 (Version 1)
Quarter: 2025Q1

REPORT INFORMATION
  Report Type: Spontaneous
  Country: IT (occurrence: IT)
  Receive Date: 20250218
  Receipt Date: 20250218
  Transmission Date: 20250409
  Serious: Yes (Other)
  Sender: JOHNSON AND JOHNSON
  Company Number: None

PATIENT
  Age: 55 Year
  Sex: Male
  Weight: 100 kg

DRUGS (1)
  1. SIMPONI [Suspect]
     Active Substance: GOLIMUMAB
     Indication: Psoriatic arthropathy
     Dosage: SIMPONI 50 MG/4 SETTIMANA?THERAPY START DATE: 10-JAN-2025
     Route: 058
     Dates: end: 20250202

REACTIONS (2)
  - Generalised pustular psoriasis [Unknown]
  - Fungal infection [Unknown]

NARRATIVE: CASE EVENT DATE: 20250105
